FAERS Safety Report 5788503-9 (Version None)
Quarter: 2008Q2

REPORT INFORMATION
  Report Type: 
  Country: None (occurrence: None)
  Receive Date: 20080625
  Receipt Date: 20080625
  Transmission Date: 20081010
  Serious: Yes (Other)
  Sender: FDA-Public Use
  Company Number: None

PATIENT
  Sex: Male
  Weight: 61.2356 kg

DRUGS (2)
  1. ROBITUSSIN NIGHTIME COLD COUGH FLU  WYETH CONSUMER HEALTH [Suspect]
     Indication: COLD SWEAT
     Dosage: TABLESPOON  1 TIME
     Dates: start: 20080612
  2. ROBITUSSIN NIGHTIME COLD COUGH FLU  WYETH CONSUMER HEALTH [Suspect]
     Indication: MALAISE
     Dosage: TABLESPOON  1 TIME
     Dates: start: 20080612

REACTIONS (6)
  - FACIAL BONES FRACTURE [None]
  - FALL [None]
  - LOSS OF CONSCIOUSNESS [None]
  - MUSCLE SPASMS [None]
  - NOSE DEFORMITY [None]
  - SYNCOPE [None]
